FAERS Safety Report 6988393-2 (Version None)
Quarter: 2010Q3

REPORT INFORMATION
  Report Type: 
  Country: None (occurrence: None)
  Receive Date: 20100914
  Receipt Date: 20100816
  Transmission Date: 20110219
  Serious: Yes (Hospitalization)
  Sender: FDA-Public Use
  Company Number: APP201000738

PATIENT
  Age: 70 Year
  Sex: Male

DRUGS (18)
  1. FLUOROURACIL [Suspect]
     Indication: RECTAL CANCER METASTATIC
     Dosage: 400 MG/M2, BOLUS, INTRAVENOUS; 2400 MG/M2, CONTINUOUS 46 HOUR INFUSION, INTRAVENOUS
     Route: 042
     Dates: start: 20100429
  2. BRIVANIB ALANINATE (BRIVANIB ALANINAT) [Suspect]
     Indication: RECTAL CANCER METASTATIC
     Dosage: 200 MG, 1 IN 1 D, ORAL
     Route: 048
     Dates: start: 20100429, end: 20100605
  3. LEUCOVORIN CALCIUM [Suspect]
     Indication: RECTAL CANCER METASTATIC
     Dosage: 400 MG/M2, ONCE EVERY TWO WEEKS, INTRAVENOUS
     Route: 042
     Dates: start: 20100429
  4. ENALAPRIL MALEATE [Concomitant]
  5. FLOMAX (MORNIFLUMATE) [Concomitant]
  6. HYDROMORPHONE HCL [Concomitant]
  7. MEGACE [Concomitant]
  8. IMODIUM [Concomitant]
  9. LOMOTIL (LOMOTIL /00034001/) [Concomitant]
  10. FENTANYL-100 [Concomitant]
  11. MAGNESIUM SULFATE [Concomitant]
  12. KYTRIL [Concomitant]
  13. PRILOSEC (OMEPRAZOLE) [Concomitant]
  14. LOPERAMIDE HYDROCHLORIDE [Concomitant]
  15. DIPHENOXYLATE HYDROCHLORIDE (DIPHENOXYLATE HYDROCHLORIDE) [Concomitant]
  16. GRANISETRON HYDROCHLORIDE (GRANISETRON HYDROCHLORIDE) [Concomitant]
  17. OMEPRAZOLE [Concomitant]
  18. LEVOFLOXACIN [Concomitant]

REACTIONS (4)
  - GASTROINTESTINAL HAEMORRHAGE [None]
  - HAEMOGLOBIN DECREASED [None]
  - HYPERBILIRUBINAEMIA [None]
  - HYPERPHAGIA [None]
